FAERS Safety Report 6578106-0 (Version None)
Quarter: 2010Q1

REPORT INFORMATION
  Report Type: 
  Country: None (occurrence: None)
  Receive Date: 20100211
  Receipt Date: 20100128
  Transmission Date: 20100710
  Serious: Yes (Hospitalization)
  Sender: FDA-Public Use
  Company Number: US-SANOFI-AVENTIS-2010SA004760

PATIENT
  Age: 55 Year
  Sex: Female
  Weight: 114.8 kg

DRUGS (16)
  1. LOVENOX [Suspect]
     Indication: PROPHYLAXIS
     Route: 065
     Dates: start: 20091225, end: 20091227
  2. LOVENOX [Suspect]
     Route: 065
     Dates: start: 20091228
  3. LOVENOX [Suspect]
     Dosage: 1MG/KG
     Route: 065
     Dates: start: 20100104
  4. FOSAMAX [Concomitant]
  5. ZYRTEC [Concomitant]
  6. BIAXIN [Concomitant]
  7. PROZAC [Concomitant]
  8. FLONASE [Concomitant]
  9. METOPROLOL TARTRATE [Concomitant]
  10. MULTI-VITAMINS [Concomitant]
  11. BACTROBAN [Concomitant]
  12. DITROPAN [Concomitant]
  13. MIRALAX [Concomitant]
  14. ZANAFLEX [Concomitant]
  15. ALL OTHER THERAPEUTIC PRODUCTS [Concomitant]
  16. DOCUSATE [Concomitant]

REACTIONS (2)
  - DEEP VEIN THROMBOSIS [None]
  - PAIN [None]
